FAERS Safety Report 6296643-3 (Version None)
Quarter: 2009Q3

REPORT INFORMATION
  Report Type: 
  Country: None (occurrence: None)
  Receive Date: 20090804
  Receipt Date: 20090728
  Transmission Date: 20100115
  Serious: Yes (Other)
  Sender: FDA-Public Use
  Company Number: GB-TEVA-203968ISR

PATIENT
  Age: 35 Year

DRUGS (5)
  1. METHOTREXATE [Suspect]
  2. FLUOROURACIL [Suspect]
  3. MITOXANTRONE [Suspect]
  4. CYCLOPHOSPHAMIDE [Suspect]
  5. VINORELBINE [Suspect]

REACTIONS (1)
  - ACUTE MYELOID LEUKAEMIA [None]
